FAERS Safety Report 20348980 (Version 1)
Quarter: 2022Q1

REPORT INFORMATION
  Report Type: Spontaneous
  Country: US (occurrence: US)
  Receive Date: 20220119
  Receipt Date: 20220119
  Transmission Date: 20220423
  Serious: No
  Sender: FDA-Public Use
  Company Number: US-drreddys-SPO/USA/22/0145682

PATIENT
  Age: 24 Year
  Sex: Female

DRUGS (3)
  1. ZENATANE [Suspect]
     Active Substance: ISOTRETINOIN
     Indication: Product used for unknown indication
     Dosage: RMA ISSUE DATE: 11 SEPTEMBER 2021 12:54:25 PM
     Dates: start: 20210911, end: 20211011
  2. ZENATANE [Suspect]
     Active Substance: ISOTRETINOIN
     Dosage: RMA ISSUE DATE: 11 OCTOBER 2021 05:36:26 PM
     Dates: start: 20211011, end: 20211113
  3. ZENATANE [Suspect]
     Active Substance: ISOTRETINOIN
     Dosage: RMA ISSUE DATE:13 NOVEMBER 2021 11:26:11 AM
     Dates: start: 20211113, end: 20220106

REACTIONS (1)
  - Treatment noncompliance [Unknown]
